FAERS Safety Report 6860736-X (Version None)
Quarter: 2010Q3

REPORT INFORMATION
  Report Type: 
  Country: None (occurrence: None)
  Receive Date: 20100720
  Receipt Date: 20100712
  Transmission Date: 20110219
  Serious: Yes (Hospitalization)
  Sender: FDA-Public Use
  Company Number: GXKR2010JP07696

PATIENT
  Age: 66 Year
  Sex: Male

DRUGS (5)
  1. PAROXETINE (NGX) [Interacting]
     Indication: MAJOR DEPRESSION
     Dosage: 20 MG/DAY
  2. PAROXETINE (NGX) [Interacting]
     Dosage: 40 MG/DAY
  3. CLOMIPRAMINE (NGX) [Suspect]
     Indication: MAJOR DEPRESSION
     Dosage: INCREASED UP TO 150 MG/DAY ON 08 AUG
     Dates: start: 20070724, end: 20070812
  4. SULPIRIDE [Concomitant]
     Dosage: 300 MG/DAY
     Dates: start: 20070301
  5. SULPIRIDE [Concomitant]
     Dosage: 150 MG/DAY

REACTIONS (16)
  - AGITATION [None]
  - ALTERED STATE OF CONSCIOUSNESS [None]
  - CONFUSIONAL STATE [None]
  - DELUSION [None]
  - DISORIENTATION [None]
  - ELECTROCONVULSIVE THERAPY [None]
  - HALLUCINATIONS, MIXED [None]
  - HOT FLUSH [None]
  - HYPERTENSION [None]
  - HYPERTHERMIA [None]
  - MUSCLE RIGIDITY [None]
  - MYOCLONUS [None]
  - SEROTONIN SYNDROME [None]
  - SUICIDE ATTEMPT [None]
  - TACHYCARDIA [None]
  - TREMOR [None]
